FAERS Safety Report 7740160-8 (Version None)
Quarter: 2011Q3

REPORT INFORMATION
  Report Type: 
  Country: None (occurrence: None)
  Receive Date: 20110909
  Receipt Date: 20110829
  Transmission Date: 20111222
  Serious: Yes (Other)
  Sender: FDA-Public Use
  Company Number: US-ROCHE-799369

PATIENT

DRUGS (1)
  1. BEVACIZUMAB [Suspect]
     Indication: METASTATIC RENAL CELL CARCINOMA
     Route: 065

REACTIONS (2)
  - HYPERTENSION [None]
  - INTERSTITIAL LUNG DISEASE [None]
